FAERS Safety Report 4577946-7 (Version None)
Quarter: 2005Q1

REPORT INFORMATION
  Report Type: 
  Country: None (occurrence: None)
  Receive Date: 20050211
  Receipt Date: 20050204
  Transmission Date: 20050727
  Serious: Yes (Death, Hospitalization)
  Sender: FDA-Public Use
  Company Number: 200510446FR

PATIENT
  Age: 56 Year
  Sex: Female
  Weight: 61 kg

DRUGS (3)
  1. TAXOTERE [Suspect]
     Indication: BREAST CANCER METASTATIC
     Route: 042
     Dates: start: 20050103, end: 20050103
  2. NEULASTA [Suspect]
     Route: 058
     Dates: start: 20050104, end: 20050104
  3. FARMORUBICINE [Suspect]
     Indication: BREAST CANCER METASTATIC
     Route: 042
     Dates: start: 20050103, end: 20050103

REACTIONS (10)
  - APLASIA [None]
  - BLOOD CULTURE POSITIVE [None]
  - BONE MARROW DEPRESSION [None]
  - ESCHERICHIA INFECTION [None]
  - GASTRIC HAEMORRHAGE [None]
  - HEPATIC FAILURE [None]
  - PROTEUS INFECTION [None]
  - SEPTIC SHOCK [None]
  - SHOCK HAEMORRHAGIC [None]
  - STREPTOCOCCAL INFECTION [None]
